FAERS Safety Report 5138732-2 (Version None)
Quarter: 2006Q4

REPORT INFORMATION
  Report Type: 
  Country: None (occurrence: None)
  Receive Date: 20061026
  Receipt Date: 20061026
  Transmission Date: 20070319
  Serious: Yes (Hospitalization)
  Sender: FDA-Public Use
  Company Number: None

PATIENT
  Age: 78 Year
  Sex: Female
  Weight: 71 kg

DRUGS (9)
  1. LISINOPRIL AND HYDROCHLOROTHIAZIDE [Suspect]
     Indication: HYPERTENSION
     Dosage: 10/12.5 MG   DAILY  PO
     Route: 048
  2. CELECOXIB [Suspect]
     Indication: OSTEOARTHRITIS
     Dosage: PO    DURATION: LESS THAN 1 YEAR
     Route: 048
  3. ACIPHEX [Concomitant]
  4. LOVASTATIN [Concomitant]
  5. LEVOTHYROXINE SODIUM [Concomitant]
  6. MIRAPEX [Concomitant]
  7. VASOTEC [Concomitant]
  8. ESTRADIOL INJ [Concomitant]
  9. ASPIRIN [Concomitant]

REACTIONS (2)
  - DUODENITIS [None]
  - PANCREATITIS ACUTE [None]
